FAERS Safety Report 8421085-1 (Version None)
Quarter: 2012Q2

REPORT INFORMATION
  Report Type: 
  Country: None (occurrence: None)
  Receive Date: 20120604
  Receipt Date: 20120604
  Transmission Date: 20120825
  Serious: No
  Sender: FDA-Public Use
  Company Number: None

PATIENT
  Sex: Female
  Weight: 83.9154 kg

DRUGS (1)
  1. LEVAQUIN [Suspect]
     Indication: CELLULITIS
     Dosage: 750 MG ONCE DAILY PO
     Route: 048
     Dates: start: 20120422, end: 20120427

REACTIONS (1)
  - TENDONITIS [None]
